FAERS Safety Report 5804979-2 (Version None)
Quarter: 2008Q3

REPORT INFORMATION
  Report Type: 
  Country: None (occurrence: None)
  Receive Date: 20080709
  Receipt Date: 20080629
  Transmission Date: 20090109
  Serious: Yes (Other)
  Sender: FDA-Public Use
  Company Number: US-PFIZER INC-2008054624

PATIENT
  Sex: Female
  Weight: 52 kg

DRUGS (8)
  1. CELEBREX [Suspect]
     Indication: ANKYLOSING SPONDYLITIS
  2. CELEBREX [Suspect]
     Indication: PSORIATIC ARTHROPATHY
  3. ADVAIR DISKUS 100/50 [Concomitant]
  4. MONTELUKAST SODIUM [Concomitant]
  5. ALBUTEROL [Concomitant]
  6. PAROXETINE HCL [Concomitant]
  7. XANAX [Concomitant]
  8. VITAMIN TAB [Concomitant]

REACTIONS (2)
  - ARTHRALGIA [None]
  - PSORIATIC ARTHROPATHY [None]
